FAERS Safety Report 7586081-5 (Version None)
Quarter: 2011Q2

REPORT INFORMATION
  Report Type: 
  Country: None (occurrence: None)
  Receive Date: 20110629
  Receipt Date: 20110629
  Transmission Date: 20111010
  Serious: Yes (Hospitalization, Disabling)
  Sender: FDA-Public Use
  Company Number: None

PATIENT
  Age: 83 Year
  Sex: Female
  Weight: 121.5 kg

DRUGS (3)
  1. TEFLARO [Suspect]
     Indication: CELLULITIS
     Dosage: 600MG Q12HRS IV DRIP
     Route: 041
     Dates: start: 20110423, end: 20110427
  2. TEFLARO [Suspect]
     Indication: SOFT TISSUE INFECTION
     Dosage: 600MG Q12HRS IV DRIP
     Route: 041
     Dates: start: 20110423, end: 20110427
  3. TEFLARO [Suspect]
     Indication: URINARY TRACT INFECTION
     Dosage: 600MG Q12HRS IV DRIP
     Route: 041
     Dates: start: 20110423, end: 20110427

REACTIONS (1)
  - THROMBOCYTOPENIA [None]
